FAERS Safety Report 11784293 (Version 2)
Quarter: 2015Q4

REPORT INFORMATION
  Report Type: Report from Study
  Country: US (occurrence: US)
  Receive Date: 20151128
  Receipt Date: 20151216
  Transmission Date: 20160305
  Serious: No
  Sender: FDA-Public Use
  Company Number: US-AMGEN-USASL2015120643

PATIENT
  Age: 58 Year
  Sex: Male

DRUGS (5)
  1. LEVAQUIN [Suspect]
     Active Substance: LEVOFLOXACIN
     Indication: OROPHARYNGEAL PAIN
  2. ENBREL [Suspect]
     Active Substance: ETANERCEPT
     Indication: PSORIASIS
     Dosage: 50 MG, 2 TIMES/WK
     Route: 065
  3. LEVAQUIN [Suspect]
     Active Substance: LEVOFLOXACIN
     Indication: EAR INFECTION
  4. LEVAQUIN [Suspect]
     Active Substance: LEVOFLOXACIN
     Indication: PARAESTHESIA
     Dosage: UNK
     Route: 065
  5. LEVAQUIN [Suspect]
     Active Substance: LEVOFLOXACIN
     Indication: EAR PAIN

REACTIONS (27)
  - Hypoaesthesia [Unknown]
  - Pain in extremity [Unknown]
  - Skin discolouration [Unknown]
  - Therapeutic response delayed [Unknown]
  - Adverse event [Unknown]
  - Oropharyngeal pain [Unknown]
  - Contusion [Unknown]
  - Intentional product misuse [Unknown]
  - Drug administration error [Unknown]
  - Device issue [Unknown]
  - Peripheral swelling [Unknown]
  - Arthropathy [Unknown]
  - Injection site pain [Unknown]
  - Labyrinthitis [Unknown]
  - Wrong technique in product usage process [Unknown]
  - Fear [Unknown]
  - Arthritis [Unknown]
  - Therapeutic response decreased [Unknown]
  - Paraesthesia [Unknown]
  - Ear pain [Unknown]
  - Psoriasis [Recovering/Resolving]
  - Condition aggravated [Unknown]
  - Peripheral coldness [Unknown]
  - Skin haemorrhage [Unknown]
  - Accident [Unknown]
  - Unevaluable event [Unknown]
  - Nasopharyngitis [Unknown]
